FAERS Safety Report 21377649 (Version 3)
Quarter: 2022Q4

REPORT INFORMATION
  Report Type: Report from Study
  Country: US (occurrence: US)
  Receive Date: 20220926
  Receipt Date: 20221130
  Transmission Date: 20230112
  Serious: Yes (Hospitalization)
  Sender: FDA-Public Use
  Company Number: US-ABBVIE-4130260

PATIENT
  Sex: Male

DRUGS (15)
  1. VENCLEXTA [Suspect]
     Active Substance: VENETOCLAX
     Indication: Retinal vein occlusion
     Dosage: TAKE WITH MEAL AND WATER AT THE SAME TIME EACH DAY. SWALLOW WHOLE, DO NOT CHEW,  CRUSH OR BREAK?F...
     Route: 048
     Dates: start: 20220908
  2. ZOVIRAX [Concomitant]
     Active Substance: ACYCLOVIR
     Indication: Prophylaxis
     Dosage: FORM STRENGTH 400 MILLIGRAM
     Route: 048
  3. LEVAQUIN [Concomitant]
     Active Substance: LEVOFLOXACIN
     Indication: Product used for unknown indication
     Dosage: FORM STRENGTH 500 MILLIGRAMS?TAKE WHEN ANC BELOW 1
     Route: 048
     Dates: start: 20220908
  4. TOPROL XL [Concomitant]
     Active Substance: METOPROLOL SUCCINATE
     Indication: Product used for unknown indication
     Dosage: 50MG 24 HR TABLET/ DO NOT CRUSH OR CHEW??FORM STRENGTH 50 MILLIGRAM
     Route: 048
  5. ULORIC [Concomitant]
     Active Substance: FEBUXOSTAT
     Indication: Product used for unknown indication
     Dosage: FORM STRENGTH 40 MILLIGRAMS
     Route: 048
  6. ZETIA [Concomitant]
     Active Substance: EZETIMIBE
     Indication: Product used for unknown indication
     Dosage: FORM STRENGTH 10 MILLIGRAM
     Route: 048
  7. COMPAZINE [Concomitant]
     Active Substance: PROCHLORPERAZINE MALEATE
     Indication: Nausea
     Dosage: 10MG/AS NEEDED?FORM STRENGTH 10 MILLIGRAM
     Route: 048
     Dates: start: 20220908
  8. NORVASC [Concomitant]
     Active Substance: AMLODIPINE BESYLATE
     Indication: Product used for unknown indication
     Dosage: FORM STRENGTH 10 MILLIGRAM
     Route: 048
  9. ZOFRAN [Concomitant]
     Active Substance: ONDANSETRON HYDROCHLORIDE
     Indication: Nausea
     Dosage: FORM STRENGTH 4 MILLIGRAM
     Route: 048
     Dates: start: 20220908
  10. ULTRAM [Concomitant]
     Active Substance: TRAMADOL HYDROCHLORIDE
     Indication: Pain
     Dosage: FORM OF ADMIN 50MG TABLET/ DOSE 10 MG
     Route: 048
  11. FLEXERIL [Concomitant]
     Active Substance: CYCLOBENZAPRINE HYDROCHLORIDE
     Indication: Muscle spasms
     Dosage: TIME INTERVAL: 0.33333333 DAYS: FORM STRENGTH 10 MILLIGRAM
     Route: 048
  12. LASIX [Concomitant]
     Active Substance: FUROSEMIDE
     Indication: Product used for unknown indication
     Dosage: FORM STRENGTH 20 MILLIGRAM
     Route: 048
  13. NOXAFIL [Concomitant]
     Active Substance: POSACONAZOLE
     Indication: Product used for unknown indication
     Dosage: 100MG DR TABLET/TAKE 3 TABLETS BY MOUTH DAILY??FORM STRENGTH 100 MILLIGRAM
     Route: 048
     Dates: start: 20220908
  14. PROTONIX [Concomitant]
     Active Substance: PANTOPRAZOLE SODIUM
     Indication: Product used for unknown indication
     Dosage: 40 MG EC TABLET/ EVERY MORNING BEFORE BREAKFAST
     Route: 048
  15. MIRALAX [Concomitant]
     Active Substance: POLYETHYLENE GLYCOL 3350
     Indication: Constipation
     Dosage: DISSOLVE EACH 17 G IN 240ML OF BEVERAGE. TAKE 1 PACKET BY MOUTH DAILY?FORM STRENGTH 17 GRAMS
     Route: 048
     Dates: start: 20220908

REACTIONS (2)
  - Hospitalisation [Unknown]
  - Off label use [Unknown]

NARRATIVE: CASE EVENT DATE: 20220101
